FAERS Safety Report 8810085 (Version 1)
Quarter: 2012Q4

REPORT INFORMATION
  Report Type: 
  Country: DE (occurrence: DE)
  Receive Date: 20120926
  Receipt Date: 20120926
  Transmission Date: 20130627
  Serious: Yes (Hospitalization)
  Sender: FDA-Public Use
  Company Number: DE-PFIZER INC-2012233343

PATIENT
  Age: 59 Year
  Sex: Male
  Weight: 70.8 kg

DRUGS (18)
  1. GENOTROPIN [Suspect]
     Indication: GROWTH HORMONE DEFICIENCY
     Dosage: 0.3 mg, 7/wk
     Route: 058
     Dates: start: 20050121
  2. AMARYL [Concomitant]
     Indication: DIABETES MELLITUS
     Dosage: UNK
     Dates: start: 19870701
  3. LANTUS [Concomitant]
     Indication: DIABETES MELLITUS
     Dosage: UNK
     Dates: start: 19870701
  4. ATACAND [Concomitant]
     Indication: ESSENTIAL HYPERTENSION
     Dosage: UNK
     Dates: start: 20060424
  5. ASS-RATIOPHARM [Concomitant]
     Indication: COAGULOPATHY
     Dosage: UNK
     Dates: start: 19990701
  6. CYNT ^LILLY^ [Concomitant]
     Indication: HYPERTENSION
     Dosage: UNK
     Dates: start: 20000701
  7. ARELIX ^CASSELLA^ [Concomitant]
     Indication: URINARY TRACT DISORDER
     Dosage: UNK
     Dates: start: 20020903
  8. DELIX [Concomitant]
     Dosage: UNK
     Dates: start: 20020902
  9. OME-PUREN [Concomitant]
     Indication: DUODENAL ULCER
     Dosage: UNK
     Dates: start: 20020903
  10. HYDROCORTISONE [Concomitant]
     Indication: BLOOD CORTICOTROPHIN DECREASED
     Dosage: UNK
     Dates: start: 20021101
  11. CALCIUM [Concomitant]
     Indication: OSTEOPOROSIS
     Dosage: UNK
     Dates: start: 20021101, end: 20060914
  12. FOSAMAX [Concomitant]
     Indication: OSTEOPOROSIS
     Dosage: UNK
     Dates: start: 20021101
  13. AGGRENOX [Concomitant]
     Indication: TRANSIENT ISCHAEMIC ATTACK
     Dosage: UNK
     Dates: start: 20060424, end: 20060914
  14. PRAVASIN [Concomitant]
     Indication: HYPERCHOLESTEROLAEMIA
     Dosage: UNK
     Dates: start: 20060424
  15. TESTOSTERONE [Concomitant]
     Indication: BLOOD LUTEINISING HORMONE DECREASED
     Dosage: UNK
     Dates: start: 20020903
  16. TESTOSTERONE [Concomitant]
     Indication: BLOOD FOLLICLE STIMULATING HORMONE DECREASED
  17. TESTOSTERONE [Concomitant]
     Indication: HYPOGONADISM MALE
  18. CONCOR [Concomitant]
     Indication: CARDIAC FAILURE
     Dosage: UNK
     Dates: start: 20021121

REACTIONS (1)
  - Pneumonitis [Unknown]
